FAERS Safety Report 5403872-7 (Version None)
Quarter: 2007Q3

REPORT INFORMATION
  Report Type: 
  Country: None (occurrence: None)
  Receive Date: 20070731
  Receipt Date: 20070731
  Transmission Date: 20080115
  Serious: Yes (Life-Threatening, Hospitalization, Other)
  Sender: FDA-Public Use
  Company Number: None

PATIENT
  Sex: Male
  Weight: 63.5036 kg

DRUGS (1)
  1. OXYCOTIN 40MG X [Suspect]

REACTIONS (5)
  - CONVULSION [None]
  - DRUG DEPENDENCE [None]
  - INTENTIONAL DRUG MISUSE [None]
  - LEGAL PROBLEM [None]
  - VOMITING [None]
